FAERS Safety Report 8853948 (Version 4)
Quarter: 2012Q4

REPORT INFORMATION
  Report Type: Report from Study
  Country: JP (occurrence: JP)
  Receive Date: 20121022
  Receipt Date: 20121111
  Transmission Date: 20130627
  Serious: Yes (Death, Hospitalization, Other)
  Sender: FDA-Public Use
  Company Number: PHHY2012JP093486

PATIENT
  Sex: Male

DRUGS (10)
  1. TKI258 [Suspect]
     Indication: METASTATIC RENAL CELL CARCINOMA
     Dosage: UNK
     Route: 048
     Dates: start: 20120718, end: 20121015
  2. ZOMETA [Suspect]
     Indication: METASTASES TO BONE
     Dosage: 4 mg, (per administration)
     Route: 041
     Dates: start: 20110825, end: 201204
  3. OXYCONTIN [Concomitant]
     Indication: PAIN
     Dosage: 20 mg, UNK
     Route: 048
     Dates: start: 20121022, end: 20121106
  4. OXINORM [Concomitant]
     Indication: PAIN
     Dosage: UNK
     Route: 048
     Dates: start: 20121022, end: 20121106
  5. DECADRON                                /CAN/ [Concomitant]
     Indication: DECREASED APPETITE
     Dosage: 1 mg, UNK
     Route: 048
     Dates: start: 20121012, end: 20121106
  6. TAKEPRON [Concomitant]
     Indication: PROPHYLAXIS AGAINST GASTROINTESTINAL ULCER
     Dosage: 30 mg, UNK
     Route: 048
     Dates: start: 20120420, end: 20121106
  7. THYRADIN [Concomitant]
     Indication: PROPHYLAXIS AGAINST GASTROINTESTINAL ULCER
     Dosage: 150 ug, UNK
     Route: 048
     Dates: start: 20120829, end: 20121106
  8. LASIX [Concomitant]
     Indication: OEDEMA PERIPHERAL
     Dosage: 40 mg, UNK
     Route: 048
     Dates: start: 20121012, end: 20121106
  9. ACTOSIN [Concomitant]
     Indication: DECUBITUS ULCER
     Dosage: UNK
     Route: 061
     Dates: start: 20121019, end: 20121106
  10. SODIUM GUALENATE HYDRATE [Concomitant]
     Indication: STOMATITIS
     Dosage: UNK
     Route: 048
     Dates: start: 20120607, end: 20121106

REACTIONS (2)
  - Osteonecrosis of jaw [Unknown]
  - Malignant pleural effusion [Fatal]
